FAERS Safety Report 10217147 (Version 1)
Quarter: 2014Q2

REPORT INFORMATION
  Report Type: Spontaneous
  Country: DE (occurrence: DE)
  Receive Date: 20140604
  Receipt Date: 20140604
  Transmission Date: 20141212
  Serious: Yes (Hospitalization)
  Sender: FDA-Public Use
  Company Number: DE-ELI_LILLY_AND_COMPANY-DE201405010240

PATIENT
  Age: 73 Year
  Sex: Male

DRUGS (4)
  1. ZYPREXA [Suspect]
     Indication: PRODUCT USED FOR UNKNOWN INDICATION
     Dosage: 20 MG, QD
     Route: 048
     Dates: start: 201308, end: 20140114
  2. ERGENYL [Concomitant]
     Dosage: 2100 MG, QD
     Route: 048
     Dates: start: 2006
  3. RAMIPRIL [Concomitant]
     Dosage: 10 MG, QD
     Route: 048
     Dates: start: 2011
  4. HYDROCHLOROTHIAZIDE [Concomitant]
     Dosage: 50 MG, QD
     Route: 048
     Dates: start: 2011

REACTIONS (3)
  - Camptocormia [Recovered/Resolved]
  - Pain [Unknown]
  - Disorientation [Unknown]
